FAERS Safety Report 21195404 (Version 2)
Quarter: 2022Q3

REPORT INFORMATION
  Report Type: Spontaneous
  Country: FR (occurrence: FR)
  Receive Date: 20220810
  Receipt Date: 20220820
  Transmission Date: 20221026
  Serious: No
  Sender: FDA-Public Use
  Company Number: FR-SANOFI-01179609

PATIENT
  Sex: Female
  Weight: 60 kg

DRUGS (7)
  1. RIFAMPIN [Suspect]
     Active Substance: RIFAMPIN
     Indication: Tuberculosis
     Dosage: 500 MG, QD
  2. RIFAMPIN [Suspect]
     Active Substance: RIFAMPIN
     Indication: Respiratory distress
  3. RIFAMPIN [Suspect]
     Active Substance: RIFAMPIN
     Indication: Tuberculosis liver
  4. RIFAMPIN [Suspect]
     Active Substance: RIFAMPIN
     Indication: Meningitis tuberculous
  5. RIFAMPIN [Suspect]
     Active Substance: RIFAMPIN
     Indication: Hepatic cytolysis
  6. RIFAMPIN [Suspect]
     Active Substance: RIFAMPIN
     Indication: Colitis
  7. RIFATER [Suspect]
     Active Substance: ISONIAZID\PYRAZINAMIDE\RIFAMPIN
     Indication: Tuberculosis
     Dosage: 4 DF, QD

REACTIONS (1)
  - Incorrect dose administered [Unknown]
